FAERS Safety Report 14534601 (Version 1)
Quarter: 2018Q1

REPORT INFORMATION
  Report Type: Spontaneous
  Country: FR (occurrence: FR)
  Receive Date: 20180215
  Receipt Date: 20180215
  Transmission Date: 20180509
  Serious: Yes (Hospitalization)
  Sender: FDA-Public Use
  Company Number: FR-GUERBET-FR-20180063

PATIENT
  Age: 73 Year
  Sex: Male
  Weight: 67 kg

DRUGS (2)
  1. LIPIODOL [Suspect]
     Active Substance: ETHIODIZED OIL
     Indication: THERAPEUTIC EMBOLISATION
     Route: 013
     Dates: start: 20180125, end: 20180125
  2. ZANOSAR [Suspect]
     Active Substance: STREPTOZOCIN
     Indication: THERAPEUTIC EMBOLISATION
     Route: 013
     Dates: start: 20180125, end: 20180125

REACTIONS (1)
  - Thrombocytopenia [Recovering/Resolving]

NARRATIVE: CASE EVENT DATE: 20180126
